FAERS Safety Report 26111627 (Version 1)
Quarter: 2025Q4

REPORT INFORMATION
  Report Type: Spontaneous
  Country: GB (occurrence: GB)
  Receive Date: 20251202
  Receipt Date: 20251202
  Transmission Date: 20260118
  Serious: Yes (Other)
  Sender: RANBAXY
  Company Number: GB-MHRA-MED-202511072143568680-VWJZY

PATIENT
  Age: 42 Year
  Sex: Female
  Weight: 78 kg

DRUGS (1)
  1. OLANZAPINE [Suspect]
     Active Substance: OLANZAPINE
     Indication: Mania
     Dosage: AT NIGHT
     Route: 065
     Dates: start: 20250804, end: 20250913

REACTIONS (2)
  - Maternal exposure during breast feeding [Unknown]
  - Sedation complication [Unknown]

NARRATIVE: CASE EVENT DATE: 20250804
